FAERS Safety Report 22861892 (Version 2)
Quarter: 2024Q1

REPORT INFORMATION
  Report Type: Report from Study
  Country: US (occurrence: US)
  Receive Date: 20230824
  Receipt Date: 20240212
  Transmission Date: 20240409
  Serious: Yes (Other)
  Sender: FDA-Public Use
  Company Number: US-TAKEDA-2023TUS082564

PATIENT
  Age: 23 Year
  Sex: Male

DRUGS (1)
  1. VEDOLIZUMAB [Suspect]
     Active Substance: VEDOLIZUMAB
     Indication: Crohn^s disease
     Dosage: 300 MILLIGRAM
     Route: 042
     Dates: end: 202008

REACTIONS (3)
  - Crohn^s disease [Unknown]
  - Large intestinal stenosis [Not Recovered/Not Resolved]
  - Rectal stenosis [Not Recovered/Not Resolved]

NARRATIVE: CASE EVENT DATE: 20200801
